FAERS Safety Report 4304456-4 (Version None)
Quarter: 2004Q1

REPORT INFORMATION
  Report Type: 
  Country: None (occurrence: None)
  Receive Date: 20040225
  Receipt Date: 20040225
  Transmission Date: 20041129
  Serious: Yes (Death)
  Sender: FDA-Public Use
  Company Number: None

PATIENT
  Age: 47 Year
  Sex: Male
  Weight: 70.3075 kg

DRUGS (2)
  1. TEMAZEPAM [Suspect]
     Indication: INSOMNIA
     Dosage: 1 BEDTIME INCREASED
     Dates: start: 19980909, end: 19990208
  2. FLURAZEPAM [Suspect]
     Indication: INSOMNIA
     Dosage: 1 BED TIME INCREASED
     Dates: start: 19970518, end: 19980909

REACTIONS (4)
  - COMPLETED SUICIDE [None]
  - DEPENDENCE [None]
  - DEPRESSION [None]
  - INSOMNIA [None]
